FAERS Safety Report 4277738-2 (Version None)
Quarter: 2004Q1

REPORT INFORMATION
  Report Type: 
  Country: None (occurrence: None)
  Receive Date: 20040123
  Receipt Date: 20040113
  Transmission Date: 20041129
  Serious: Yes (Life-Threatening)
  Sender: FDA-Public Use
  Company Number: NL-BRISTOL-MYERS SQUIBB COMPANY-12480950

PATIENT
  Age: 43 Year
  Sex: Male

DRUGS (3)
  1. EFAVIRENZ CAPS 200 MG [Suspect]
     Route: 048
     Dates: start: 20020101
  2. EPIVIR [Concomitant]
     Dates: start: 20020101
  3. VIREAD [Concomitant]
     Dates: start: 20020101

REACTIONS (2)
  - CIRCULATORY COLLAPSE [None]
  - VENTRICULAR TACHYCARDIA [None]
